FAERS Safety Report 7992743-8 (Version None)
Quarter: 2011Q4

REPORT INFORMATION
  Report Type: 
  Country: None (occurrence: None)
  Receive Date: 20111219
  Receipt Date: 20110829
  Transmission Date: 20120403
  Serious: No
  Sender: FDA-Public Use
  Company Number: US-ASTRAZENECA-2011SE52104

PATIENT
  Age: 43 Year
  Sex: Male

DRUGS (2)
  1. VYTORIN [Concomitant]
     Route: 065
  2. CRESTOR [Suspect]
     Route: 048

REACTIONS (2)
  - LIVER DISORDER [None]
  - LIVER FUNCTION TEST ABNORMAL [None]
